FAERS Safety Report 16555976 (Version 1)
Quarter: 2019Q3

REPORT INFORMATION
  Report Type: Spontaneous
  Country: US (occurrence: US)
  Receive Date: 20190710
  Receipt Date: 20190710
  Transmission Date: 20191004
  Serious: No
  Sender: FDA-Public Use
  Company Number: US-TEVA-2019-US-1065003

PATIENT
  Sex: Male

DRUGS (1)
  1. LOSARTAN POTASSIUM TABLET [Suspect]
     Active Substance: LOSARTAN POTASSIUM
     Route: 065

REACTIONS (4)
  - Pruritus generalised [Recovered/Resolved]
  - Product substitution issue [Unknown]
  - Rash [Recovered/Resolved]
  - Flushing [Recovered/Resolved]
